FAERS Safety Report 15835589 (Version 1)
Quarter: 2019Q1

REPORT INFORMATION
  Report Type: Spontaneous
  Country: US (occurrence: US)
  Receive Date: 20190117
  Receipt Date: 20190117
  Transmission Date: 20190417
  Serious: Yes (Other)
  Sender: FDA-Public Use
  Company Number: US-PFIZER INC-2019019084

PATIENT
  Age: 83 Year
  Sex: Female
  Weight: 83.1 kg

DRUGS (3)
  1. PREMARIN [Concomitant]
     Active Substance: ESTROGENS, CONJUGATED
     Indication: MENOPAUSE
     Dosage: UNK, DAILY [HALF OF 1.25 MG EVERY DAY]
     Route: 048
  2. GABAPENTIN. [Suspect]
     Active Substance: GABAPENTIN
     Dosage: UNK
  3. VITAMIN D [Concomitant]
     Active Substance: CHOLECALCIFEROL
     Dosage: UNK, 1X/DAY [EVERY MORNING]

REACTIONS (4)
  - Fall [Unknown]
  - Asthenia [Unknown]
  - Drug ineffective [Unknown]
  - Deafness [Unknown]
